FAERS Safety Report 5079016-0 (Version None)
Quarter: 2006Q3

REPORT INFORMATION
  Report Type: 
  Country: None (occurrence: None)
  Receive Date: 20060808
  Receipt Date: 20050829
  Transmission Date: 20061208
  Serious: Yes (Hospitalization)
  Sender: FDA-Public Use
  Company Number: 142987USA

PATIENT
  Age: 79 Year
  Sex: Male

DRUGS (26)
  1. DACARBAZINE [Suspect]
     Indication: MALIGNANT MELANOMA
     Dosage: 1850 MILLIGRAM DAILY INTRAVENOUS (NOS)
     Route: 042
     Dates: start: 20010827, end: 20011029
  2. DACARBAZINE [Suspect]
     Indication: MALIGNANT MELANOMA
     Dosage: 1899 MILLIGRAM DAILY INTRAVEOUS (NOS)
     Route: 042
     Dates: start: 20011029, end: 20011029
  3. DACARBAZINE PLUS G3139 [Suspect]
     Indication: MALIGNANT MELANOMA
     Dates: start: 20010822, end: 20011029
  4. PROPOXYPHENE HYDROCHLORIDE [Concomitant]
  5. ONDANSETRON HCL [Concomitant]
  6. MAALOX FAST BLOCKER [Concomitant]
  7. OXYCODONE HCL [Concomitant]
  8. FENTANYL [Concomitant]
  9. EPOETIN [Concomitant]
  10. MEGESTEROL [Concomitant]
  11. SENNA [Concomitant]
  12. ASPIRIN [Concomitant]
  13. VITAMIN E [Concomitant]
  14. IRBESARTAN [Concomitant]
  15. NEFEDIPINE [Concomitant]
  16. PRAVASTATIN [Concomitant]
  17. MESALAZINE [Concomitant]
  18. PSYLLIUM [Concomitant]
  19. FUROSEMIDE [Concomitant]
  20. MULTIVITAMIN [Concomitant]
  21. CALCIUM GLUCONATE [Concomitant]
  22. MAGNESIUM [Concomitant]
  23. TEMAZEPAM [Concomitant]
  24. PROCHLORPERAZINE TAB [Concomitant]
  25. ACETAMINOPHEN [Concomitant]
  26. IBUPROFEN [Concomitant]

REACTIONS (3)
  - ATRIAL FIBRILLATION [None]
  - HYPOKALAEMIA [None]
  - SUPRAVENTRICULAR EXTRASYSTOLES [None]
